FAERS Safety Report 11910801 (Version 1)
Quarter: 2016Q1

REPORT INFORMATION
  Report Type: Spontaneous
  Country: FR (occurrence: FR)
  Receive Date: 20160112
  Receipt Date: 20160112
  Transmission Date: 20160526
  Serious: Yes (Hospitalization, Other)
  Sender: FDA-Public Use
  Company Number: FR-ASTRAZENECA-2016SE01216

PATIENT
  Age: 729 Month
  Sex: Male

DRUGS (7)
  1. INNOHEP [Suspect]
     Active Substance: TINZAPARIN SODIUM
     Route: 058
     Dates: start: 20151114, end: 20151123
  2. CRESTOR [Suspect]
     Active Substance: ROSUVASTATIN CALCIUM
     Route: 048
     Dates: start: 20151104, end: 20151118
  3. INNOHEP [Suspect]
     Active Substance: TINZAPARIN SODIUM
     Route: 058
     Dates: start: 20151104, end: 20151106
  4. ALEPSAL [Concomitant]
     Active Substance: CAFFEINE\PHENOBARBITAL
  5. XALATAN [Concomitant]
     Active Substance: LATANOPROST
  6. ASOPT [Concomitant]
  7. KARDEGIC [Concomitant]
     Active Substance: ASPIRIN LYSINE

REACTIONS (5)
  - Cholestasis [Recovering/Resolving]
  - Gamma-glutamyltransferase increased [Recovering/Resolving]
  - Transaminases increased [Recovering/Resolving]
  - Blood alkaline phosphatase increased [Recovering/Resolving]
  - Pulmonary embolism [Unknown]

NARRATIVE: CASE EVENT DATE: 201511
